FAERS Safety Report 16871306 (Version 1)
Quarter: 2019Q4

REPORT INFORMATION
  Report Type: Spontaneous
  Country: US (occurrence: US)
  Receive Date: 20191001
  Receipt Date: 20191001
  Transmission Date: 20200122
  Serious: No
  Sender: FDA-Public Use
  Company Number: US-009507513-1909USA014583

PATIENT
  Sex: Female
  Weight: 86.17 kg

DRUGS (4)
  1. COZAAR [Suspect]
     Active Substance: LOSARTAN POTASSIUM
     Dosage: UNK
     Route: 048
  2. TYVASO [Concomitant]
     Active Substance: TREPROSTINIL
     Dosage: STRENGTH/FORMULATION: 0.6 MG.ML, 3-9 BREATHS INHALED
     Dates: start: 20190731
  3. DILTIAZEM. [Concomitant]
     Active Substance: DILTIAZEM
     Dosage: UNK
  4. ADEMPAS [Concomitant]
     Active Substance: RIOCIGUAT
     Dosage: UNK

REACTIONS (3)
  - Muscle spasms [Unknown]
  - Oedema [Unknown]
  - Drug ineffective [Unknown]
